FAERS Safety Report 7636442-0 (Version None)
Quarter: 2011Q3

REPORT INFORMATION
  Report Type: 
  Country: None (occurrence: None)
  Receive Date: 20110726
  Receipt Date: 20110721
  Transmission Date: 20111222
  Serious: Yes (Death, Other)
  Sender: FDA-Public Use
  Company Number: US-BRISTOL-MYERS SQUIBB COMPANY-15916315

PATIENT
  Age: 13 Year
  Sex: Female

DRUGS (2)
  1. BENZONATATE [Concomitant]
     Indication: COUGH
  2. ABILIFY [Suspect]
     Indication: BIPOLAR DISORDER

REACTIONS (4)
  - COUGH [None]
  - EAR INFECTION [None]
  - SUDDEN CARDIAC DEATH [None]
  - FATIGUE [None]
